FAERS Safety Report 6445617-8 (Version None)
Quarter: 2009Q4

REPORT INFORMATION
  Report Type: 
  Country: None (occurrence: None)
  Receive Date: 20091118
  Receipt Date: 20091118
  Transmission Date: 20100525
  Serious: Yes (Life-Threatening, Hospitalization)
  Sender: FDA-Public Use
  Company Number: None

PATIENT
  Sex: Male
  Weight: 99.7913 kg

DRUGS (1)
  1. PLAVIX [Suspect]
     Dosage: PLAVIX 75MG 1 PER DAY

REACTIONS (2)
  - SUBDURAL HAEMATOMA [None]
  - THROMBOSIS [None]
